FAERS Safety Report 5017290-7 (Version None)
Quarter: 2006Q2

REPORT INFORMATION
  Report Type: 
  Country: None (occurrence: None)
  Receive Date: 20060602
  Receipt Date: 20030812
  Transmission Date: 20061013
  Serious: Yes (Other)
  Sender: FDA-Public Use
  Company Number: US-MERCK-0308USA01328

PATIENT
  Age: 74 Year
  Sex: Female

DRUGS (10)
  1. HYDRODIURIL [Concomitant]
     Route: 048
  2. PROTONIX [Concomitant]
     Route: 065
  3. ASCORBIC ACID [Concomitant]
     Route: 065
  4. VITAMIN E [Concomitant]
     Route: 065
  5. COD LIVER OIL [Concomitant]
     Route: 065
  6. ZOCOR [Suspect]
     Indication: HYPERCHOLESTEROLAEMIA
     Route: 048
     Dates: start: 20030101, end: 20030812
  7. ZOCOR [Suspect]
     Route: 048
     Dates: start: 20030601, end: 20030101
  8. METFORMIN [Concomitant]
     Route: 065
  9. DIABETA [Concomitant]
     Route: 065
  10. DIABETA [Concomitant]
     Route: 065

REACTIONS (5)
  - BACK PAIN [None]
  - BLOOD CHOLESTEROL INCREASED [None]
  - PAIN IN EXTREMITY [None]
  - SENSORY LOSS [None]
  - SPONDYLITIS [None]
